FAERS Safety Report 8162682-0 (Version None)
Quarter: 2012Q1

REPORT INFORMATION
  Report Type: 
  Country: None (occurrence: None)
  Receive Date: 20120224
  Receipt Date: 20120216
  Transmission Date: 20120608
  Serious: Yes (Death, Hospitalization, Other)
  Sender: FDA-Public Use
  Company Number: KR-SANOFI-AVENTIS-200811427GDDC

PATIENT
  Age: 65 Year
  Sex: Female
  Weight: 63 kg

DRUGS (9)
  1. DOCETAXEL [Suspect]
     Route: 042
     Dates: start: 20070831, end: 20070831
  2. GLICLAZIDE [Concomitant]
     Dosage: DOSE UNIT: 80 MG
     Route: 048
  3. AMLODIPINE [Concomitant]
     Dosage: DOSE UNIT: 5 MG
     Route: 048
  4. GABAPENTIN [Concomitant]
     Dosage: DOSE UNIT: 100 MG
     Route: 048
  5. TIANEPTINE [Concomitant]
     Dosage: DOSE UNIT: 12.5 MG
     Route: 048
  6. LOSARTAN POTASSIUM [Concomitant]
     Dosage: DOSE UNIT: 40 MG
     Route: 048
  7. ANALGESICS [Concomitant]
     Route: 048
  8. DOCETAXEL [Suspect]
     Indication: BREAST CANCER FEMALE
     Route: 042
     Dates: start: 20080125, end: 20080125
  9. ASPIRIN [Concomitant]
     Route: 048

REACTIONS (12)
  - RENAL FAILURE [None]
  - FEBRILE NEUTROPENIA [None]
  - RENAL CYST [None]
  - SEPTIC SHOCK [None]
  - RENAL ISCHAEMIA [None]
  - COLITIS [None]
  - ARTERIOSCLEROSIS [None]
  - ASCITES [None]
  - ESCHERICHIA SEPSIS [None]
  - ACIDOSIS [None]
  - RENAL FAILURE ACUTE [None]
  - CLOSTRIDIUM TEST POSITIVE [None]
